FAERS Safety Report 17075425 (Version 1)
Quarter: 2019Q4

REPORT INFORMATION
  Report Type: Spontaneous
  Country: US (occurrence: US)
  Receive Date: 20191126
  Receipt Date: 20191126
  Transmission Date: 20200122
  Serious: Yes (Other)
  Sender: FDA-Public Use
  Company Number: US-HIKMA PHARMACEUTICALS USA INC.-US-H14001-19-05845

PATIENT
  Sex: Female
  Weight: 59.93 kg

DRUGS (3)
  1. FLONASE [Concomitant]
     Active Substance: FLUTICASONE PROPIONATE
     Indication: PRODUCT USED FOR UNKNOWN INDICATION
     Route: 065
  2. COUMADIN [Concomitant]
     Active Substance: WARFARIN SODIUM
     Indication: PRODUCT USED FOR UNKNOWN INDICATION
     Route: 065
  3. BOSENTAN. [Suspect]
     Active Substance: BOSENTAN
     Indication: PULMONARY HYPERTENSION
     Route: 048

REACTIONS (5)
  - Product dose omission [Recovered/Resolved]
  - Dyspnoea [Recovered/Resolved]
  - Loss of consciousness [Recovered/Resolved]
  - Product administration interrupted [Recovered/Resolved]
  - Drug ineffective [Recovered/Resolved]
